FAERS Safety Report 14382583 (Version 2)
Quarter: 2018Q1

REPORT INFORMATION
  Report Type: Report from Study
  Country: US (occurrence: US)
  Receive Date: 20180112
  Receipt Date: 20180129
  Transmission Date: 20180509
  Serious: Yes (Hospitalization)
  Sender: FDA-Public Use
  Company Number: US-ACTELION-A-NJ2018-165493

PATIENT
  Age: 1 Year
  Sex: Male

DRUGS (2)
  1. ZAVESCA [Suspect]
     Active Substance: MIGLUSTAT
     Indication: NIEMANN-PICK DISEASE
     Dosage: 50 MG, QD
     Route: 048
     Dates: start: 20170322
  2. MULTIVITAMIN [Concomitant]
     Active Substance: VITAMINS

REACTIONS (3)
  - Incarcerated inguinal hernia [Recovered/Resolved]
  - Congenital inguinal hernia [Recovered/Resolved]
  - Condition aggravated [Recovered/Resolved]
